FAERS Safety Report 25490241 (Version 1)
Quarter: 2025Q2

REPORT INFORMATION
  Report Type: Spontaneous
  Country: JP (occurrence: JP)
  Receive Date: 20250628
  Receipt Date: 20250628
  Transmission Date: 20250716
  Serious: Yes (Hospitalization, Other)
  Sender: ACCORD
  Company Number: JP-Accord-489525

PATIENT
  Age: 73 Year
  Sex: Male

DRUGS (1)
  1. METHOTREXATE [Suspect]
     Active Substance: METHOTREXATE
     Indication: Rheumatoid arthritis

REACTIONS (7)
  - Diffuse large B-cell lymphoma [Recovered/Resolved]
  - Jaundice cholestatic [Unknown]
  - Hepatic function abnormal [Recovering/Resolving]
  - Bile duct stenosis [Recovered/Resolved]
  - Pancreatic mass [Recovered/Resolved]
  - Thyroid mass [Recovered/Resolved]
  - Intestinal mass [Recovered/Resolved]
